FAERS Safety Report 17668269 (Version 1)
Quarter: 2020Q2

REPORT INFORMATION
  Report Type: Spontaneous
  Country: US (occurrence: US)
  Receive Date: 20200414
  Receipt Date: 20200414
  Transmission Date: 20200713
  Serious: No
  Sender: FDA-Public Use
  Company Number: US-ACCORD-133494

PATIENT
  Sex: Male

DRUGS (2)
  1. DONEPEZIL/DONEPEZIL HYDROCHLORIDE [Concomitant]
     Active Substance: DONEPEZIL HYDROCHLORIDE
  2. FINASTERIDE ACCORD [Suspect]
     Active Substance: FINASTERIDE
     Indication: SLEEP DISORDER
     Dosage: 5 MG, ORAL, DAILY?STRENGTH: 5 MG
     Route: 048
     Dates: start: 201903

REACTIONS (2)
  - Off label use [Unknown]
  - Diarrhoea [Not Recovered/Not Resolved]
